FAERS Safety Report 9152694 (Version 1)
Quarter: 2013Q1

REPORT INFORMATION
  Report Type: Spontaneous
  Country: ES (occurrence: ES)
  Receive Date: 20130308
  Receipt Date: 20130308
  Transmission Date: 20140127
  Serious: Yes (Other)
  Sender: FDA-Public Use
  Company Number: ES-PFIZER INC-2013073923

PATIENT
  Age: 12 Year
  Sex: Female

DRUGS (12)
  1. CITARABINA [Suspect]
     Indication: ACUTE MYELOID LEUKAEMIA
     Dosage: 280 MG (TOTAL DAILY DOSE),1X/DAY
     Route: 042
     Dates: start: 20120613, end: 20120620
  2. ONDANSETRON [Concomitant]
     Dosage: 7MG (TOTAL DAILY DOSE), EVERY 8 HOURS
     Route: 042
  3. FLUCONAZOLE [Concomitant]
     Route: 042
  4. FENTANYL [Concomitant]
     Dosage: 40UG (TOTAL DAILY DOSE),1X/DAY
     Route: 065
  5. ACETAMINOPHEN [Concomitant]
     Dosage: 700MG (TOTAL DAILY DOSE), EVERY 6 HOURS
     Route: 042
  6. CEFEPIME [Concomitant]
     Dosage: 2 GRAM (TOTAL DAILY DOSE ), EVERY 8 HOURS
     Route: 042
  7. ETOPOSIDE [Concomitant]
     Dosage: 200 MG (TOTAL DAILY DOSE), 1X/DAY
     Route: 042
     Dates: start: 20120619
  8. PYRIDOXINE [Concomitant]
     Dosage: 300MG (TOTAL DAILY DOSE ), EVERY 12 HOURS
     Route: 042
  9. LAMIVUDINE [Concomitant]
     Dosage: UNK
  10. OMEPRAZOLE [Concomitant]
     Dosage: 20MG (TOTAL DAILY DOSE), EVERY 12 HOURS
     Route: 042
  11. MIDAZOLAM [Concomitant]
     Dosage: 1 DF, AS NEEDED
     Route: 042
  12. METAMIZOLE [Concomitant]
     Dosage: 1000MG (TOTAL DAILY DOSE), EVERY 6 HOURS
     Route: 042

REACTIONS (3)
  - Asthenia [Recovered/Resolved]
  - Paralysis [Recovering/Resolving]
  - Aphasia [Recovered/Resolved]
